FAERS Safety Report 7796177 (Version 3)
Quarter: 2014Q1

REPORT INFORMATION
  Report Type: Spontaneous
  Country: US (occurrence: US)
  Receive Date: 20110202
  Receipt Date: 20140123
  Transmission Date: 20141002
  Serious: Yes (Other)
  Sender: FDA-Public Use
  Company Number: US-BAYER-2011-010356

PATIENT
  Age: 22 Year
  Sex: Female

DRUGS (7)
  1. YASMIN [Suspect]
     Indication: PRODUCT USED FOR UNKNOWN INDICATION
     Dosage: UNK
     Dates: start: 20090407, end: 20100715
  2. KEFLEX [Concomitant]
     Indication: URINARY TRACT INFECTION
     Route: 048
  3. OTHER ANALGESICS AND ANTIPYRETICS [Concomitant]
     Dosage: 2 TABLETS PRN
     Route: 048
  4. SALINE [Concomitant]
     Dosage: 1 SPRAY PRN
     Route: 045
  5. TYLENOL W/CODEINE NO. 3 [Concomitant]
     Dosage: 2 TABLETS PRN
     Route: 048
  6. HYOSCYAMINE [Concomitant]
     Dosage: 0.125 MG, TID
     Route: 048
     Dates: start: 20100708
  7. HYDROCODONE [Concomitant]
     Dosage: 500 MG, EVERY 4 TO 6 HOURS
     Route: 048
     Dates: start: 20100708

REACTIONS (3)
  - Cholecystectomy [None]
  - Cholecystitis chronic [None]
  - Pain [None]
